FAERS Safety Report 7170725-6 (Version None)
Quarter: 2010Q4

REPORT INFORMATION
  Report Type: 
  Country: None (occurrence: None)
  Receive Date: 20101206
  Receipt Date: 20101201
  Transmission Date: 20110411
  Serious: Yes (Death, Hospitalization)
  Sender: FDA-Public Use
  Company Number: 2009AC000138

PATIENT
  Age: 25 Year
  Sex: Male

DRUGS (13)
  1. DIGOXIN [Suspect]
     Dosage: 125 MCG QD PO
     Route: 048
     Dates: start: 20050607, end: 20080301
  2. COREG [Concomitant]
  3. LISINOPRIL [Concomitant]
  4. FOROSEMIDE [Concomitant]
  5. ASPIRIN [Concomitant]
  6. COLACE [Concomitant]
  7. POTASSIUM [Concomitant]
  8. MILRINONE [Concomitant]
  9. LEVOPHED [Concomitant]
  10. VASSOPRESSIN [Concomitant]
  11. ANTIBIOTICS [Concomitant]
  12. HYDRALAZINE [Concomitant]
  13. ISOSORBIDE DINITRATE [Concomitant]

REACTIONS (26)
  - ABDOMINAL PAIN [None]
  - BACTERIAL TEST POSITIVE [None]
  - BRONCHIAL OEDEMA [None]
  - CARDIAC FAILURE CONGESTIVE [None]
  - CARDIO-RESPIRATORY ARREST [None]
  - CARDIOACTIVE DRUG LEVEL DECREASED [None]
  - CYANOSIS [None]
  - DRUG SCREEN POSITIVE [None]
  - ECONOMIC PROBLEM [None]
  - GASTROENTERITIS VIRAL [None]
  - HEPATIC ENZYME INCREASED [None]
  - MITRAL VALVE INCOMPETENCE [None]
  - MULTIPLE INJURIES [None]
  - MUSCLE TWITCHING [None]
  - MYDRIASIS [None]
  - NAUSEA [None]
  - PERIPHERAL COLDNESS [None]
  - PNEUMONIA VIRAL [None]
  - PRODUCTIVE COUGH [None]
  - PULMONARY HYPERTENSION [None]
  - PULMONARY VALVE INCOMPETENCE [None]
  - PYREXIA [None]
  - SEPSIS [None]
  - TRICUSPID VALVE INCOMPETENCE [None]
  - UNRESPONSIVE TO STIMULI [None]
  - VOMITING [None]
